FAERS Safety Report 20704423 (Version 7)
Quarter: 2022Q3

REPORT INFORMATION
  Report Type: Report from Study
  Country: CN (occurrence: CN)
  Receive Date: 20220413
  Receipt Date: 20220706
  Transmission Date: 20221027
  Serious: Yes (Death, Life-Threatening, Other)
  Sender: FDA-Public Use
  Company Number: CN-BRISTOL-MYERS SQUIBB COMPANY-2022-018260

PATIENT
  Age: 81 Year
  Sex: Female
  Weight: 51 kg

DRUGS (20)
  1. AZACITIDINE [Suspect]
     Active Substance: AZACITIDINE
     Indication: Acute myeloid leukaemia
     Dosage: DAY 1 THROUGH D
     Route: 058
     Dates: start: 20220329, end: 20220330
  2. AZACITIDINE [Suspect]
     Active Substance: AZACITIDINE
     Dosage: 75 MG/M2
     Route: 058
     Dates: start: 20220412, end: 20220416
  3. VENETOCLAX [Suspect]
     Active Substance: VENETOCLAX
     Indication: Acute myeloid leukaemia
     Dosage: 1 ONCE
     Route: 048
     Dates: start: 20220329, end: 20220329
  4. VENETOCLAX [Suspect]
     Active Substance: VENETOCLAX
     Dosage: 1 IN 1 D
     Route: 048
     Dates: start: 20220330, end: 20220330
  5. VENETOCLAX [Suspect]
     Active Substance: VENETOCLAX
     Dosage: 10 MG,1 IN 1 D
     Route: 048
     Dates: start: 20220412, end: 20220412
  6. VENETOCLAX [Suspect]
     Active Substance: VENETOCLAX
     Dosage: 20 MG,1 IN 1 D
     Route: 048
     Dates: start: 20220413, end: 20220413
  7. VENETOCLAX [Suspect]
     Active Substance: VENETOCLAX
     Dosage: 50 MG,1 IN 1 D
     Route: 048
     Dates: start: 20220414, end: 20220414
  8. VENETOCLAX [Suspect]
     Active Substance: VENETOCLAX
     Dosage: 100 MG,1 IN 1 D
     Route: 048
     Dates: start: 20220415, end: 20220421
  9. TIGECYCLINE [Concomitant]
     Active Substance: TIGECYCLINE
     Indication: Pneumonia
     Dosage: 1 IN 12 HR
     Route: 041
     Dates: start: 20220325, end: 20220406
  10. ALLOPURINOL [Concomitant]
     Active Substance: ALLOPURINOL
     Indication: Tumour lysis syndrome
     Dosage: 3 IN 1 D
     Route: 048
     Dates: start: 20220317, end: 20220331
  11. ALLOPURINOL [Concomitant]
     Active Substance: ALLOPURINOL
     Indication: Prophylaxis
  12. DEXTROSE\WATER [Concomitant]
     Active Substance: DEXTROSE\WATER
     Indication: Prophylaxis
     Dosage: 500 ML
     Route: 042
     Dates: start: 20220324, end: 20220407
  13. DEXTROSE\WATER [Concomitant]
     Active Substance: DEXTROSE\WATER
     Indication: Tumour lysis syndrome
  14. SODIUM BICARBONATE [Concomitant]
     Active Substance: SODIUM BICARBONATE
     Indication: Prophylaxis
     Dosage: 2 IN 1 D
     Route: 041
     Dates: start: 20220317, end: 20220328
  15. SODIUM BICARBONATE [Concomitant]
     Active Substance: SODIUM BICARBONATE
     Indication: Tumour lysis syndrome
  16. POTASSIUM CHLORIDE [Concomitant]
     Active Substance: POTASSIUM CHLORIDE
     Indication: Mineral supplementation
     Dosage: 2 IN 1 D
     Route: 041
     Dates: start: 20220317, end: 20220328
  17. FUROSEMIDE [Concomitant]
     Active Substance: FUROSEMIDE
     Indication: Polyuria
     Dosage: 1 IN 1 D
     Route: 042
     Dates: start: 20220317, end: 20220318
  18. VORICONAZOLE [Concomitant]
     Active Substance: VORICONAZOLE
     Indication: Pneumonia
     Route: 041
     Dates: start: 20220322, end: 20220420
  19. CEFOPERAZONE\SULBACTAM [Concomitant]
     Active Substance: CEFOPERAZONE\SULBACTAM
     Indication: Pneumonia
     Route: 041
     Dates: start: 20220317, end: 20220324
  20. CEFOPERAZONE\SULBACTAM [Concomitant]
     Active Substance: CEFOPERAZONE\SULBACTAM
     Route: 041
     Dates: start: 20220324, end: 20220411

REACTIONS (3)
  - Death [Fatal]
  - Myelosuppression [Not Recovered/Not Resolved]
  - Subdural effusion [Not Recovered/Not Resolved]

NARRATIVE: CASE EVENT DATE: 20220331
